FAERS Safety Report 23286441 (Version 1)
Quarter: 2023Q4

REPORT INFORMATION
  Report Type: Spontaneous
  Country: US (occurrence: US)
  Receive Date: 20231212
  Receipt Date: 20231212
  Transmission Date: 20240110
  Serious: Yes (Other)
  Sender: FDA-Public Use
  Company Number: US-UCBSA-2023058316

PATIENT
  Age: 37 Year
  Sex: Female

DRUGS (1)
  1. CIMZIA [Suspect]
     Active Substance: CERTOLIZUMAB PEGOL
     Indication: Psoriatic arthropathy
     Dosage: 400 MILLIGRAM, EV 2 WEEKS(QOW) AT WEEKS 0, 2,4
     Route: 058
     Dates: start: 202311

REACTIONS (1)
  - Psoriatic arthropathy [Unknown]

NARRATIVE: CASE EVENT DATE: 20231101
